FAERS Safety Report 21793937 (Version 2)
Quarter: 2023Q1

REPORT INFORMATION
  Report Type: Spontaneous
  Country: AU (occurrence: AU)
  Receive Date: 20221229
  Receipt Date: 20230105
  Transmission Date: 20230418
  Serious: Yes (Other)
  Sender: FDA-Public Use
  Company Number: AU-MYLANLABS-2022M1145460

PATIENT
  Age: 51 Year
  Sex: Male

DRUGS (1)
  1. CLOZARIL [Suspect]
     Active Substance: CLOZAPINE
     Indication: Schizophrenia
     Dosage: 500 MILLIGRAM
     Route: 048
     Dates: start: 20141202

REACTIONS (4)
  - Pancytopenia [Unknown]
  - White blood cell count decreased [Recovering/Resolving]
  - Platelet count decreased [Unknown]
  - COVID-19 [Unknown]

NARRATIVE: CASE EVENT DATE: 20221220
